FAERS Safety Report 12323143 (Version 1)
Quarter: 2016Q2

REPORT INFORMATION
  Report Type: Spontaneous
  Country: IT (occurrence: IT)
  Receive Date: 20160502
  Receipt Date: 20160502
  Transmission Date: 20160815
  Serious: Yes (Other)
  Sender: FDA-Public Use
  Company Number: IT-SA-2016SA085837

PATIENT
  Age: 65 Year
  Sex: Female

DRUGS (3)
  1. CITALOPRAM HYDROBROMIDE. [Concomitant]
     Active Substance: CITALOPRAM HYDROBROMIDE
     Indication: DEPRESSION
  2. LASIX [Suspect]
     Active Substance: FUROSEMIDE
     Indication: HYPERTENSIVE CRISIS
     Route: 042
     Dates: start: 20151121, end: 20151121
  3. TRIATEC [Concomitant]
     Active Substance: RAMIPRIL
     Indication: HYPERTENSION
     Route: 048

REACTIONS (1)
  - Presyncope [Recovering/Resolving]

NARRATIVE: CASE EVENT DATE: 20151121
